FAERS Safety Report 4783404-7 (Version None)
Quarter: 2005Q3

REPORT INFORMATION
  Report Type: 
  Country: None (occurrence: None)
  Receive Date: 20050929
  Receipt Date: 20050919
  Transmission Date: 20060218
  Serious: Yes (Hospitalization)
  Sender: FDA-Public Use
  Company Number: PL-BRISTOL-MYERS SQUIBB COMPANY-13114418

PATIENT
  Age: 52 Year
  Sex: Female

DRUGS (5)
  1. VINFLUNINE [Suspect]
     Indication: NON-SMALL CELL LUNG CANCER
     Dosage: ACTUAL DOSE: 496 MG.  DOSE REDUCED TO 280 MG/M2 FOR CYCLE 2 ON 25-SEP-2002.
     Route: 042
     Dates: start: 20020904, end: 20040904
  2. CISPLATIN [Suspect]
     Indication: NON-SMALL CELL LUNG CANCER
     Route: 042
     Dates: start: 20020904, end: 20020904
  3. AMINOPHYLLINE [Concomitant]
  4. KETONAL [Concomitant]
  5. RANIGAST [Concomitant]

REACTIONS (4)
  - ABDOMINAL PAIN [None]
  - GENERAL PHYSICAL HEALTH DETERIORATION [None]
  - NAUSEA [None]
  - VOMITING [None]
